FAERS Safety Report 23529423 (Version 3)
Quarter: 2024Q2

REPORT INFORMATION
  Report Type: Spontaneous
  Country: JP (occurrence: JP)
  Receive Date: 20240216
  Receipt Date: 20240603
  Transmission Date: 20240716
  Serious: Yes (Death, Hospitalization, Other)
  Sender: FDA-Public Use
  Company Number: JP-CHUGAI-2024004024AA

PATIENT
  Age: 6 Decade
  Sex: Male

DRUGS (2)
  1. AVASTIN [Suspect]
     Active Substance: BEVACIZUMAB
     Indication: Hepatocellular carcinoma
     Dosage: UNK
     Route: 065
  2. TECENTRIQ [Suspect]
     Active Substance: ATEZOLIZUMAB
     Indication: Hepatocellular carcinoma
     Dosage: UNK
     Route: 065

REACTIONS (6)
  - Death [Fatal]
  - Hepatic failure [Not Recovered/Not Resolved]
  - Encephalopathy [Unknown]
  - Altered state of consciousness [Unknown]
  - Adrenal insufficiency [Unknown]
  - Metastases to lymph nodes [Unknown]
